FAERS Safety Report 8422751 (Version 2)
Quarter: 2012Q4

REPORT INFORMATION
  Report Type: Spontaneous
  Country: US (occurrence: None)
  Receive Date: 20120213
  Receipt Date: 20120824
  Transmission Date: 20130627
  Serious: Yes (Other)
  Sender: FDA-Public Use
  Company Number: AUR-APL-2012-00848

PATIENT
  Age: 69 Year
  Sex: Female
  Weight: 90.7 kg

DRUGS (8)
  1. NAPROXEN [Suspect]
     Indication: POLYARTHRITIS
     Dosage: UNKNOWN
     Dates: end: 201112
  2. SIMVASTATIN [Suspect]
     Indication: BLOOD CHOLESTEROL INCREASED
     Dosage: UNKNOWN
     Dates: end: 201110
  3. AMLODIPINE BESYLATE [Suspect]
     Indication: PULMONARY HYPERTENSION
     Dosage: (5 MG, 1 D), UNKNOWN 10 MG (5 MG, 2 IN 1 D), UNKNOWN
     Dates: end: 2011
  4. CELEBREX [Suspect]
     Indication: POLYARTHRITIS
     Dosage: (200 MG, 1 D), UNKNOWN
     Dates: start: 201112
  5. LIPITOR [Suspect]
     Indication: BLOOD CHOLESTEROL INCREASED
     Dosage: 20 MG (20 MG, 1 IN 1 D), ORAL
     Route: 048
  6. LIPITOR [Suspect]
     Indication: BLOOD CHOLESTEROL INCREASED
     Dosage: 20 MG (20 MG, 1 IN 1 D), ORAL
     Route: 048
     Dates: start: 201110
  7. LEVOXYL [Concomitant]
  8. UNSPECIFIED THIAZIDE (THIAZIDE DERIVATIVES) [Concomitant]

REACTIONS (3)
  - JOINT SWELLING [None]
  - CENTRAL NERVOUS SYSTEM LESION [None]
  - PULMONARY HYPERTENSION [None]
